FAERS Safety Report 5248595-2 (Version None)
Quarter: 2007Q1

REPORT INFORMATION
  Report Type: 
  Country: None (occurrence: None)
  Receive Date: 20070222
  Receipt Date: 20070208
  Transmission Date: 20070707
  Serious: Yes (Hospitalization, Other)
  Sender: FDA-Public Use
  Company Number: PAR_1341_2007

PATIENT
  Age: 31 Year
  Sex: Male

DRUGS (3)
  1. IBUPROFEN [Suspect]
     Indication: SUICIDE ATTEMPT
     Dosage: 8000 MG ONCE PO
     Route: 048
  2. METHYLPHENIDATE HCL [Suspect]
     Indication: ATTENTION DEFICIT/HYPERACTIVITY DISORDER
     Dosage: 1000 MG ONCE PO
     Route: 048
  3. 2 BOTTLES OF WINE [Suspect]
     Indication: SUICIDE ATTEMPT

REACTIONS (14)
  - ABNORMAL BEHAVIOUR [None]
  - ALCOHOL POISONING [None]
  - ALCOHOL USE [None]
  - BLOOD POTASSIUM DECREASED [None]
  - BLOOD SODIUM DECREASED [None]
  - DRUG LEVEL ABOVE THERAPEUTIC [None]
  - DRUG TOXICITY [None]
  - DYSKINESIA [None]
  - FEELING ABNORMAL [None]
  - INCORRECT DOSE ADMINISTERED [None]
  - PALPITATIONS [None]
  - SUICIDE ATTEMPT [None]
  - SYMPATHOMIMETIC EFFECT [None]
  - URINARY RETENTION [None]
